FAERS Safety Report 9882744 (Version 2)
Quarter: 2014Q1

REPORT INFORMATION
  Report Type: Report from Study
  Country: US (occurrence: US)
  Receive Date: 20140207
  Receipt Date: 20140207
  Transmission Date: 20141002
  Serious: Yes (Hospitalization, Other)
  Sender: FDA-Public Use
  Company Number: US-BIOMARINAP-US-2013-102481

PATIENT
  Age: 17 Year
  Sex: Female

DRUGS (3)
  1. NAGLAZYME [Suspect]
     Indication: MUCOPOLYSACCHARIDOSIS VI
     Dosage: UNK, QW
     Route: 041
     Dates: start: 20071212
  2. ATENOLOL [Concomitant]
     Indication: PRODUCT USED FOR UNKNOWN INDICATION
     Dosage: 50 MG, UNK
     Route: 048
  3. FUROSEMIDE [Concomitant]
     Indication: PULMONARY OEDEMA
     Dosage: 20 MG, UNK
     Route: 048
     Dates: end: 20130705

REACTIONS (1)
  - Spinal cord compression [Recovered/Resolved]
